FAERS Safety Report 16801682 (Version 1)
Quarter: 2019Q3

REPORT INFORMATION
  Report Type: Spontaneous
  Country: TR (occurrence: TR)
  Receive Date: 20190912
  Receipt Date: 20190912
  Transmission Date: 20191005
  Serious: Yes (Hospitalization)
  Sender: FDA-Public Use
  Company Number: TR-PURDUE PHARMA-CAN-2019-0010270

PATIENT
  Age: 5 Year
  Sex: Male
  Weight: 23 kg

DRUGS (1)
  1. NON-PMN METHYLPHENIDATE HYDROCHLORIDE [Suspect]
     Active Substance: METHYLPHENIDATE HYDROCHLORIDE
     Indication: ATTENTION DEFICIT/HYPERACTIVITY DISORDER
     Dosage: 10 MG, DAILY
     Route: 065

REACTIONS (1)
  - Priapism [Recovered/Resolved]
